FAERS Safety Report 8167060-6 (Version None)
Quarter: 2012Q1

REPORT INFORMATION
  Report Type: 
  Country: None (occurrence: None)
  Receive Date: 20120227
  Receipt Date: 20120216
  Transmission Date: 20120608
  Serious: Yes (Hospitalization)
  Sender: FDA-Public Use
  Company Number: US-ROCHE-786279

PATIENT
  Sex: Female
  Weight: 94.3 kg

DRUGS (10)
  1. METFORMIN HCL [Concomitant]
  2. ANORECTAL PREPARATIONS [Concomitant]
     Dosage: FREQUENCY: AS NECESSARY.
  3. COPEGUS [Suspect]
     Dosage: 400 MG QD
     Route: 048
  4. TRIAMCINOLONE [Concomitant]
     Dosage: AS NECESSARY
  5. COPEGUS [Suspect]
     Indication: HEPATITIS C
     Route: 048
  6. TELAPREVIR [Suspect]
     Indication: HEPATITIS C
     Route: 048
  7. IMODIUM [Concomitant]
     Dosage: DOSE: 2 MG AS REQUIRED
  8. SYNTHROID [Concomitant]
  9. PEGINTERFERON ALFA-2A [Suspect]
     Indication: HEPATITIS C
     Dosage: INTERRUPTED
     Route: 058
  10. LEXAPRO [Concomitant]

REACTIONS (8)
  - DISORIENTATION [None]
  - PARAESTHESIA [None]
  - ANAEMIA [None]
  - VIITH NERVE PARALYSIS [None]
  - HEMIPARESIS [None]
  - FALL [None]
  - ASTHENIA [None]
  - VERTIGO [None]
